FAERS Safety Report 7526272-2 (Version None)
Quarter: 2011Q2

REPORT INFORMATION
  Report Type: 
  Country: None (occurrence: None)
  Receive Date: 20110527
  Receipt Date: 20110518
  Transmission Date: 20111010
  Serious: No
  Sender: FDA-Public Use
  Company Number: ACO_22838_2011

PATIENT
  Age: 52 Year
  Sex: Female
  Weight: 61.2 kg

DRUGS (4)
  1. INVESTIGATIONAL DRUG [Concomitant]
  2. AMPYRA [Suspect]
     Indication: GAIT DISTURBANCE
     Dosage: 10 MG, QD, ORAL ; 10
     Route: 048
     Dates: start: 20110326, end: 20110330
  3. AMPYRA [Suspect]
     Indication: GAIT DISTURBANCE
     Dosage: 10 MG, QD, ORAL ; 10
     Route: 048
     Dates: start: 20110401
  4. SINUS MEDICATION (PARACETAMOL, PSEUDOEPHEDRINE HYDROCHLORIDE) [Concomitant]

REACTIONS (6)
  - INAPPROPRIATE SCHEDULE OF DRUG ADMINISTRATION [None]
  - DRUG INEFFECTIVE [None]
  - TREMOR [None]
  - INSOMNIA [None]
  - VISION BLURRED [None]
  - FATIGUE [None]
